FAERS Safety Report 17351364 (Version 2)
Quarter: 2020Q1

REPORT INFORMATION
  Report Type: Spontaneous
  Country: US (occurrence: US)
  Receive Date: 20200130
  Receipt Date: 20200219
  Transmission Date: 20200409
  Serious: Yes (Other)
  Sender: FDA-Public Use
  Company Number: US-ALNYLAM PHARMACEUTICALS, INC.-ALN-2020-000086

PATIENT
  Sex: Female

DRUGS (1)
  1. ONPATTRO [Suspect]
     Active Substance: PATISIRAN SODIUM
     Indication: HEREDITARY NEUROPATHIC AMYLOIDOSIS
     Dosage: UNK, Q3W
     Route: 042

REACTIONS (13)
  - Mood swings [Unknown]
  - Balance disorder [Unknown]
  - Disorientation [Unknown]
  - Somnolence [Unknown]
  - Wheelchair user [Unknown]
  - Pelvic fracture [Unknown]
  - Mobility decreased [Unknown]
  - Delusion [Unknown]
  - Prosopagnosia [Unknown]
  - Decreased appetite [Unknown]
  - Thirst [Unknown]
  - Abnormal behaviour [Unknown]
  - No adverse event [Unknown]
